FAERS Safety Report 11385856 (Version 3)
Quarter: 2016Q1

REPORT INFORMATION
  Report Type: Spontaneous
  Country: US (occurrence: US)
  Receive Date: 20150817
  Receipt Date: 20160201
  Transmission Date: 20160525
  Serious: No
  Sender: FDA-Public Use
  Company Number: US-ASTRAZENECA-2015SE76705

PATIENT
  Sex: Female
  Weight: 78 kg

DRUGS (8)
  1. METFORMIN [Concomitant]
     Active Substance: METFORMIN HYDROCHLORIDE
     Indication: POLYCYSTIC OVARIES
     Route: 048
     Dates: start: 2011
  2. ALBUTEROL. [Concomitant]
     Active Substance: ALBUTEROL
     Indication: INHALATION THERAPY
     Route: 055
  3. NEFAZODONE [Concomitant]
     Active Substance: NEFAZODONE
     Indication: ANXIETY
     Route: 048
  4. BUSPAR [Concomitant]
     Active Substance: BUSPIRONE HYDROCHLORIDE
  5. PRENATAL VITAMINS [Concomitant]
     Active Substance: VITAMINS
     Indication: PREGNANCY
     Route: 048
  6. SERZONE [Concomitant]
     Active Substance: NEFAZODONE HYDROCHLORIDE
  7. BUSPIRONE [Concomitant]
     Active Substance: BUSPIRONE HYDROCHLORIDE
     Indication: ANXIETY
     Route: 048
  8. PULMICORT FLEXHALER [Suspect]
     Active Substance: BUDESONIDE
     Indication: ASTHMA
     Dosage: 1 PUFF TWICE A DAY
     Route: 055

REACTIONS (12)
  - Exposure during pregnancy [Unknown]
  - Pelvic pain [Unknown]
  - Essential hypertension [Unknown]
  - Dyspepsia [Unknown]
  - Headache [Unknown]
  - Frustration tolerance decreased [Unknown]
  - Nausea [Unknown]
  - Vulvovaginal pruritus [Unknown]
  - Vulvovaginal injury [Unknown]
  - Migraine [Unknown]
  - Constipation [Unknown]
  - Dyspnoea [Unknown]
